FAERS Safety Report 8701900 (Version 4)
Quarter: 2014Q1

REPORT INFORMATION
  Report Type: Report from Study
  Country: DE (occurrence: DE)
  Receive Date: 20120803
  Receipt Date: 20140121
  Transmission Date: 20141002
  Serious: Yes (Other)
  Sender: FDA-Public Use
  Company Number: DE-MPIJNJ-2012-05254

PATIENT
  Sex: 0

DRUGS (11)
  1. VELCADE [Suspect]
     Indication: PLASMA CELL MYELOMA
     Dosage: 2.1 MG, CYCLIC
     Route: 058
     Dates: start: 20120706, end: 20120717
  2. DEXAMETHASONE [Concomitant]
     Dosage: 20 MG, UNK
     Route: 048
     Dates: start: 20120706, end: 20120709
  3. PANTOZOL                           /01263202/ [Concomitant]
     Dosage: 40 MG, UNK
  4. L-THYROXIN [Concomitant]
  5. ROCALTROL [Concomitant]
  6. KATADOLON                          /00890102/ [Concomitant]
     Dosage: 100 MG, UNK
  7. RENAGEL                            /01459901/ [Concomitant]
     Dosage: 800 MG, UNK
  8. ACICLOVIR [Concomitant]
     Dosage: 200 MG, UNK
  9. COTRIM FORTE EU RHO [Concomitant]
     Dosage: 980 MG, UNK
  10. ZOFRAN                             /00955301/ [Concomitant]
     Dosage: 8 MG, UNK
  11. NOVALGIN                           /00169801/ [Concomitant]
     Indication: PAIN

REACTIONS (1)
  - Muscular weakness [Recovered/Resolved with Sequelae]
